FAERS Safety Report 22366052 (Version 1)
Quarter: 2023Q2

REPORT INFORMATION
  Report Type: Spontaneous
  Country: CN (occurrence: CN)
  Receive Date: 20230525
  Receipt Date: 20230525
  Transmission Date: 20230722
  Serious: Yes (Other)
  Sender: FDA-Public Use
  Company Number: CN-PFIZER INC-PV202300089702

PATIENT
  Age: 59 Year
  Sex: Male
  Weight: 80 kg

DRUGS (2)
  1. AXITINIB [Suspect]
     Active Substance: AXITINIB
     Indication: Neoplasm
     Dosage: 5 MG, 1X/DAY
     Route: 048
     Dates: start: 20210422
  2. SINTILIMAB [Suspect]
     Active Substance: SINTILIMAB
     Indication: Neoplasm
     Dosage: 200 MG, EVERY 3 WEEKS
     Route: 042
     Dates: start: 20210422

REACTIONS (3)
  - Severe cutaneous adverse reaction [Recovering/Resolving]
  - Dysphonia [Unknown]
  - Off label use [Unknown]
